FAERS Safety Report 10272620 (Version 3)
Quarter: 2015Q2

REPORT INFORMATION
  Report Type: Spontaneous
  Country: US (occurrence: None)
  Receive Date: 20140630
  Receipt Date: 20150622
  Transmission Date: 20150821
  Serious: Yes (Death)
  Sender: FDA-Public Use
  Company Number: 1713747-2014-99994

PATIENT
  Age: 40 Year
  Sex: Male

DRUGS (3)
  1. LIBERTY CYCLER SET [Concomitant]
  2. DELFLEX [Suspect]
     Active Substance: CALCIUM CHLORIDE\DEXTROSE MONOHYDRATE\MAGNESIUM CHLORIDE\SODIUM CHLORIDE\SODIUM LACTATE
     Indication: RENAL FAILURE
     Dosage: INTRAPERITONEAL
     Route: 033
     Dates: start: 20140509
  3. LIBERTY CYCLER [Concomitant]
     Active Substance: DEVICE

REACTIONS (6)
  - Fall [None]
  - Malaise [None]
  - Loss of consciousness [None]
  - Arteriosclerosis coronary artery [None]
  - Hypertensive heart disease [None]
  - Cardiac death [None]

NARRATIVE: CASE EVENT DATE: 20140509
